FAERS Safety Report 5139113-8 (Version None)
Quarter: 2006Q4

REPORT INFORMATION
  Report Type: 
  Country: None (occurrence: None)
  Receive Date: 20061030
  Receipt Date: 20060622
  Transmission Date: 20070319
  Serious: No
  Sender: FDA-Public Use
  Company Number: US-GLAXOSMITHKLINE-A0610013A

PATIENT
  Age: 63 Year
  Sex: Female

DRUGS (11)
  1. ADVAIR HFA [Suspect]
     Indication: DRUG USE FOR UNKNOWN INDICATION
     Route: 055
  2. DYAZIDE [Suspect]
     Indication: DRUG USE FOR UNKNOWN INDICATION
     Route: 048
  3. HYDROCHLOROTHIAZIDE [Concomitant]
  4. DILTIAZEM HCL [Concomitant]
  5. CLONIDINE [Concomitant]
  6. ASPIRIN [Concomitant]
  7. GELATIN [Concomitant]
  8. ECHINACEA [Concomitant]
  9. CENTRUM SILVER [Concomitant]
  10. VITAMIN E [Concomitant]
  11. VIACTIV [Concomitant]

REACTIONS (3)
  - DRY MOUTH [None]
  - TONGUE ERUPTION [None]
  - TONGUE ULCERATION [None]
